FAERS Safety Report 8189881 (Version 5)
Quarter: 2013Q1

REPORT INFORMATION
  Report Type: Spontaneous
  Country: CL (occurrence: CL)
  Receive Date: 20111019
  Receipt Date: 20130318
  Transmission Date: 20140127
  Serious: Yes (Hospitalization)
  Sender: FDA-Public Use
  Company Number: CL-SANOFI-AVENTIS-2011SA068239

PATIENT
  Age: 63 Year
  Sex: Male
  Weight: 93 kg

DRUGS (25)
  1. PLAVIX [Suspect]
     Indication: ACUTE CORONARY SYNDROME
     Route: 048
     Dates: start: 20110928, end: 20110928
  2. PLAVIX [Suspect]
     Indication: ACUTE CORONARY SYNDROME
     Route: 048
     Dates: start: 20110929
  3. ASPIRIN [Suspect]
     Indication: ACUTE CORONARY SYNDROME
     Route: 048
     Dates: start: 20110928, end: 20110928
  4. ASPIRIN [Suspect]
     Indication: ACUTE CORONARY SYNDROME
     Route: 048
     Dates: start: 20110929, end: 20110930
  5. ASPIRIN [Suspect]
     Indication: ACUTE CORONARY SYNDROME
     Route: 048
     Dates: start: 20111001
  6. BLINDED THERAPY [Suspect]
     Indication: ACUTE CORONARY SYNDROME
     Route: 042
     Dates: start: 20110929, end: 20110929
  7. SINTROM [Concomitant]
     Route: 041
     Dates: start: 20110928, end: 20110928
  8. SINTROM [Concomitant]
     Route: 041
     Dates: start: 20110929, end: 20110930
  9. SINTROM [Concomitant]
     Route: 048
     Dates: start: 20111006, end: 20111010
  10. SINTROM [Concomitant]
     Route: 048
     Dates: start: 20111009, end: 20111009
  11. FRAGMIN [Concomitant]
     Dosage: 20000 IU/24 H.
     Route: 058
     Dates: start: 20110930, end: 20111005
  12. FRAGMIN [Concomitant]
     Dosage: 14000 IU/24 H.
     Route: 058
     Dates: start: 20111007, end: 20111011
  13. FRAGMIN [Concomitant]
     Dosage: 5000 IU/24 H.
     Route: 058
     Dates: start: 20111014, end: 20111016
  14. FAMOTIDINE [Concomitant]
     Dates: start: 20110930
  15. ATORVASTATIN [Concomitant]
     Dates: start: 20110928
  16. CLONAZEPAM [Concomitant]
     Dates: start: 20110928, end: 20110928
  17. BERODUAL [Concomitant]
     Dates: start: 20110929, end: 20110929
  18. BERODUAL [Concomitant]
     Dosage: DOSE:4 PUFF(S)
     Dates: start: 20111001
  19. SPIRONOLACTONE [Concomitant]
     Dates: start: 20110930
  20. ENALAPRIL [Concomitant]
     Dates: start: 20110930
  21. BISOPROLOL [Concomitant]
     Dates: start: 20111003
  22. GLYCERYL TRINITRATE [Concomitant]
     Dosage: DOSE:10 MICROGRAM(S)/MILLILITRE
     Dates: start: 20110928, end: 20110929
  23. GLYCERYL TRINITRATE [Concomitant]
     Dates: start: 20110929, end: 20110929
  24. GLYCERYL TRINITRATE [Concomitant]
     Dates: start: 20111006, end: 20111006
  25. VERAPAMIL [Concomitant]
     Dates: start: 20110929, end: 20110929

REACTIONS (1)
  - Vascular pseudoaneurysm [Recovered/Resolved]
